FAERS Safety Report 21863397 (Version 2)
Quarter: 2023Q1

REPORT INFORMATION
  Report Type: Spontaneous
  Country: JP (occurrence: JP)
  Receive Date: 20230115
  Receipt Date: 20230117
  Transmission Date: 20230418
  Serious: Yes (Hospitalization)
  Sender: FDA-Public Use
  Company Number: JP-JNJFOC-20211106240

PATIENT
  Age: 80 Year
  Sex: Male

DRUGS (3)
  1. UPTRAVI [Suspect]
     Active Substance: SELEXIPAG
     Indication: Pulmonary arterial hypertension
     Route: 048
     Dates: start: 20211004
  2. UPTRAVI [Suspect]
     Active Substance: SELEXIPAG
     Route: 048
  3. VORICONAZOLE [Concomitant]
     Active Substance: VORICONAZOLE
     Indication: Aspergillus infection

REACTIONS (5)
  - Respiratory failure [Unknown]
  - Headache [Recovered/Resolved]
  - Blood potassium increased [Recovered/Resolved]
  - Temporomandibular joint syndrome [Recovering/Resolving]
  - Somnolence [Recovering/Resolving]

NARRATIVE: CASE EVENT DATE: 20211001
